FAERS Safety Report 5908365-6 (Version None)
Quarter: 2008Q3

REPORT INFORMATION
  Report Type: 
  Country: None (occurrence: None)
  Receive Date: 20080930
  Receipt Date: 20080916
  Transmission Date: 20090109
  Serious: Yes (Other)
  Sender: FDA-Public Use
  Company Number: 2008BI024169

PATIENT
  Sex: Female

DRUGS (2)
  1. AVONEX [Suspect]
     Indication: MULTIPLE SCLEROSIS
     Dosage: QW;IM
     Route: 030
     Dates: start: 20070808
  2. DILANTIN [Concomitant]

REACTIONS (5)
  - DRUG DOSE OMISSION [None]
  - HEPATIC FAILURE [None]
  - ILL-DEFINED DISORDER [None]
  - INFLUENZA LIKE ILLNESS [None]
  - VOMITING [None]
